FAERS Safety Report 7267573-5 (Version None)
Quarter: 2011Q1

REPORT INFORMATION
  Report Type: 
  Country: None (occurrence: None)
  Receive Date: 20110201
  Receipt Date: 20110124
  Transmission Date: 20110831
  Serious: Yes (Hospitalization)
  Sender: FDA-Public Use
  Company Number: US-ELI_LILLY_AND_COMPANY-US201101006102

PATIENT
  Sex: Male
  Weight: 64.853 kg

DRUGS (9)
  1. PLAVIX [Concomitant]
     Indication: PRODUCT USED FOR UNKNOWN INDICATION
     Dosage: 75 MG, DAILY (1/D)
     Route: 048
  2. PRAVASTATIN [Concomitant]
     Indication: PRODUCT USED FOR UNKNOWN INDICATION
     Dosage: 40 MG, DAILY (1/D)
     Route: 048
  3. BYETTA [Suspect]
     Indication: TYPE 2 DIABETES MELLITUS
     Dosage: 5 UG, 2/D
     Route: 058
  4. COREG [Concomitant]
     Indication: PRODUCT USED FOR UNKNOWN INDICATION
     Dosage: 3.125 MG, 2/D
     Route: 048
  5. BYETTA [Suspect]
     Dosage: 10 UG, 2/D
     Route: 058
  6. GLUCOVANCE [Concomitant]
     Indication: TYPE 2 DIABETES MELLITUS
     Dosage: 10/1000
     Route: 048
  7. LISINOPRIL [Concomitant]
     Indication: PRODUCT USED FOR UNKNOWN INDICATION
     Dosage: 5 MG, DAILY (1/D)
     Route: 048
  8. ASPIRIN [Concomitant]
     Indication: PRODUCT USED FOR UNKNOWN INDICATION
     Dosage: 81 MG, DAILY (1/D)
     Route: 048
  9. ICAPS [Concomitant]
     Indication: EYE DISORDER

REACTIONS (5)
  - ARTERIAL OCCLUSIVE DISEASE [None]
  - FALL [None]
  - WEIGHT DECREASED [None]
  - MUSCULOSKELETAL PAIN [None]
  - MUSCLE STRAIN [None]
